FAERS Safety Report 16318298 (Version 2)
Quarter: 2019Q2

REPORT INFORMATION
  Report Type: Spontaneous
  Country: LB (occurrence: LB)
  Receive Date: 20190516
  Receipt Date: 20190531
  Transmission Date: 20190711
  Serious: Yes (Hospitalization)
  Sender: FDA-Public Use
  Company Number: LB-HIKMA PHARMACEUTICALS USA INC.-LB-H14001-19-03121

PATIENT
  Age: 29 Year
  Sex: Male
  Weight: 120 kg

DRUGS (3)
  1. MEGAMOX (AMOXICILLIN\CLAVULANATE POTASSIUM) [Suspect]
     Active Substance: AMOXICILLIN\CLAVULANATE POTASSIUM
     Route: 048
     Dates: start: 20190508, end: 20190508
  2. MEGAMOX (AMOXICILLIN\CLAVULANATE POTASSIUM) [Suspect]
     Active Substance: AMOXICILLIN\CLAVULANATE POTASSIUM
     Indication: PERIODONTITIS
     Route: 048
     Dates: start: 20190430, end: 20190501
  3. SURGAM [Concomitant]
     Active Substance: TIAPROFENIC ACID
     Indication: PRODUCT USED FOR UNKNOWN INDICATION
     Route: 065

REACTIONS (3)
  - Rash pruritic [Recovered/Resolved]
  - Blood pressure increased [Recovered/Resolved]
  - Syncope [Recovering/Resolving]

NARRATIVE: CASE EVENT DATE: 20190508
